FAERS Safety Report 9509496 (Version 1)
Quarter: 2013Q3

REPORT INFORMATION
  Report Type: Spontaneous
  Country: US (occurrence: US)
  Receive Date: 20130909
  Receipt Date: 20130909
  Transmission Date: 20140515
  Serious: No
  Sender: FDA-Public Use
  Company Number: US-BRISTOL-MYERS SQUIBB COMPANY-18937540

PATIENT
  Age: 23 Year
  Sex: Male

DRUGS (4)
  1. ABILIFY [Suspect]
     Indication: MENTAL DISORDER
     Dosage: 2OR2.5MGFOR2DAYS;5MG FOR7-8DAYS;10MG 5TO6DAYS;20MGFOR2DAYS.THEN REDUCED FROM 20MGTO 10MG+TO5MG+NONE
  2. MULTIVITAMIN [Concomitant]
  3. MERCAPTOPURINE [Concomitant]
     Indication: CROHN^S DISEASE
  4. MESALAZINE [Concomitant]
     Indication: CROHN^S DISEASE

REACTIONS (4)
  - Thinking abnormal [Unknown]
  - Sleep disorder [Unknown]
  - Decreased appetite [Unknown]
  - Weight decreased [Unknown]
